FAERS Safety Report 7238208-2 (Version None)
Quarter: 2011Q1

REPORT INFORMATION
  Report Type: 
  Country: None (occurrence: None)
  Receive Date: 20110121
  Receipt Date: 20110118
  Transmission Date: 20110831
  Serious: No
  Sender: FDA-Public Use
  Company Number: US-PFIZER INC-2011012658

PATIENT

DRUGS (1)
  1. AZITHROMYCIN [Suspect]

REACTIONS (2)
  - SINUS DISORDER [None]
  - COUGH [None]
